FAERS Safety Report 13329066 (Version 1)
Quarter: 2017Q1

REPORT INFORMATION
  Report Type: Spontaneous
  Country: US (occurrence: US)
  Receive Date: 20170313
  Receipt Date: 20170313
  Transmission Date: 20170428
  Serious: No
  Sender: FDA-Public Use
  Company Number: US-ALKABELLO-2016AA000537

PATIENT
  Age: 60 Year
  Sex: Male

DRUGS (1)
  1. GRASTEK [Suspect]
     Active Substance: PHLEUM PRATENSE POLLEN
     Dosage: DOSE UNIT:2800 BIOEQUIVALENT ALLERGENIC UNIT (S)
     Route: 060
     Dates: end: 20160224

REACTIONS (3)
  - Oropharyngeal pain [Recovered/Resolved]
  - Urticaria [Unknown]
  - Pruritus [Recovered/Resolved]

NARRATIVE: CASE EVENT DATE: 20160223
